FAERS Safety Report 16765668 (Version 4)
Quarter: 2020Q2

REPORT INFORMATION
  Report Type: Spontaneous
  Country: US (occurrence: US)
  Receive Date: 20190903
  Receipt Date: 20200403
  Transmission Date: 20200713
  Serious: Yes (Disabling, Other)
  Sender: FDA-Public Use
  Company Number: US-009507513-1901USA000212

PATIENT
  Sex: Male
  Weight: 72.56 kg

DRUGS (4)
  1. INFLUENZA VIRUS VACCINE (UNSPECIFIED) [Suspect]
     Active Substance: INFLUENZA VIRUS VACCINE
     Indication: ANTIVIRAL PROPHYLAXIS
     Dosage: UNK
     Route: 065
     Dates: start: 20121023
  2. GADOLINIUM [Suspect]
     Active Substance: GADOLINIUM
     Indication: MAGNETIC RESONANCE IMAGING
     Dosage: UNK
     Dates: start: 20121101, end: 20121101
  3. PROSCAR [Suspect]
     Active Substance: FINASTERIDE
     Dosage: 5 MILLIGRAM, 30 MINUTES AFTER SAME MEAL EACH DAY (24HR)
     Route: 048
  4. ZOSTAVAX [Suspect]
     Active Substance: VARICELLA-ZOSTER VIRUS STRAIN OKA/MERCK LIVE ANTIGEN
     Indication: PROPHYLAXIS
     Route: 065
     Dates: start: 20121023

REACTIONS (28)
  - Cerebellar infarction [Not Recovered/Not Resolved]
  - Hypermetropia [Not Recovered/Not Resolved]
  - Synovial cyst [Not Recovered/Not Resolved]
  - Inguinal hernia [Not Recovered/Not Resolved]
  - Ischaemic stroke [Not Recovered/Not Resolved]
  - Open angle glaucoma [Unknown]
  - Nail ridging [Not Recovered/Not Resolved]
  - Vitamin D deficiency [Unknown]
  - Hyperlipidaemia [Not Recovered/Not Resolved]
  - Astigmatism [Not Recovered/Not Resolved]
  - Prostatitis [Not Recovered/Not Resolved]
  - Cerebral infarction [Not Recovered/Not Resolved]
  - Hemianopia homonymous [Not Recovered/Not Resolved]
  - Cataract [Not Recovered/Not Resolved]
  - Vision blurred [Unknown]
  - Vitreous detachment [Not Recovered/Not Resolved]
  - Gynaecomastia [Unknown]
  - Blepharitis [Not Recovered/Not Resolved]
  - Vitreous floaters [Not Recovered/Not Resolved]
  - Visual field defect [Unknown]
  - Abnormal sensation in eye [Unknown]
  - Nail pigmentation [Recovered/Resolved]
  - Cardiac murmur [Not Recovered/Not Resolved]
  - Arcus lipoides [Not Recovered/Not Resolved]
  - Transient ischaemic attack [Not Recovered/Not Resolved]
  - Cerebral small vessel ischaemic disease [Not Recovered/Not Resolved]
  - Transient ischaemic attack [Unknown]
  - Depressed mood [Unknown]

NARRATIVE: CASE EVENT DATE: 20121025
